FAERS Safety Report 7017538-3 (Version None)
Quarter: 2010Q3

REPORT INFORMATION
  Report Type: 
  Country: None (occurrence: None)
  Receive Date: 20100928
  Receipt Date: 20100916
  Transmission Date: 20110219
  Serious: Yes (Hospitalization)
  Sender: FDA-Public Use
  Company Number: PL-BAYER-201040332GPV

PATIENT
  Sex: Female
  Weight: 83 kg

DRUGS (2)
  1. QLAIRA [Suspect]
     Indication: PRODUCT USED FOR UNKNOWN INDICATION
     Route: 048
  2. MERIDIA [Suspect]
     Indication: PRODUCT USED FOR UNKNOWN INDICATION
     Route: 048

REACTIONS (2)
  - INTRA-UTERINE DEATH [None]
  - PREGNANCY ON ORAL CONTRACEPTIVE [None]
